FAERS Safety Report 7058021-9 (Version None)
Quarter: 2010Q4

REPORT INFORMATION
  Report Type: 
  Country: None (occurrence: None)
  Receive Date: 20101021
  Receipt Date: 20101021
  Transmission Date: 20110411
  Serious: Yes (Other)
  Sender: FDA-Public Use
  Company Number: None

PATIENT
  Age: 56 Year
  Sex: Female
  Weight: 52.1637 kg

DRUGS (8)
  1. VAGIFEM TAB 25 MCG 25MCG NOVO NORDISK [Suspect]
     Indication: BURNING SENSATION
     Dosage: 1 DAILY FOR 2 WEEKS THEN 2 A WE
     Dates: start: 20100513, end: 20100813
  2. VAGIFEM TAB 25 MCG 25MCG NOVO NORDISK [Suspect]
     Indication: PAIN
     Dosage: 1 DAILY FOR 2 WEEKS THEN 2 A WE
     Dates: start: 20100513, end: 20100813
  3. VAGIFEM TAB 25 MCG 25MCG NOVO NORDISK [Suspect]
     Indication: PRURITUS
     Dosage: 1 DAILY FOR 2 WEEKS THEN 2 A WE
     Dates: start: 20100513, end: 20100813
  4. VAGIFEM TAB 25 MCG 25MCG NOVO NORDISK [Suspect]
     Indication: VULVOVAGINAL DRYNESS
     Dosage: 1 DAILY FOR 2 WEEKS THEN 2 A WE
     Dates: start: 20100513, end: 20100813
  5. VAGIFEM [Suspect]
     Indication: BURNING SENSATION
     Dosage: 2 TIMES A WEEK
     Dates: start: 20100814, end: 20100909
  6. VAGIFEM [Suspect]
     Indication: PAIN
     Dosage: 2 TIMES A WEEK
     Dates: start: 20100814, end: 20100909
  7. VAGIFEM [Suspect]
     Indication: PRURITUS
     Dosage: 2 TIMES A WEEK
     Dates: start: 20100814, end: 20100909
  8. VAGIFEM [Suspect]
     Indication: VULVOVAGINAL DRYNESS
     Dosage: 2 TIMES A WEEK
     Dates: start: 20100814, end: 20100909

REACTIONS (6)
  - AREFLEXIA [None]
  - ARTHRALGIA [None]
  - HEMIPARESIS [None]
  - HYPOAESTHESIA [None]
  - NERVE INJURY [None]
  - PARAESTHESIA [None]
